FAERS Safety Report 8338525-9 (Version None)
Quarter: 2012Q2

REPORT INFORMATION
  Report Type: 
  Country: None (occurrence: None)
  Receive Date: 20120504
  Receipt Date: 20120427
  Transmission Date: 20120825
  Serious: No
  Sender: FDA-Public Use
  Company Number: US-B.I. PHARMACEUTICALS,INC./RIDGEFIELD-2012-BP-09697BP

PATIENT
  Sex: Female

DRUGS (10)
  1. TOPROL-XL [Concomitant]
     Indication: PALPITATIONS
     Dosage: 25 MG
     Route: 048
     Dates: start: 20020101
  2. MULTAQ [Concomitant]
     Indication: ATRIAL FIBRILLATION
     Dosage: 400 MG
     Route: 048
     Dates: start: 20101201
  3. MIRAPEX [Concomitant]
     Indication: RESTLESS LEGS SYNDROME
     Dosage: 0.5 MG
     Route: 048
     Dates: start: 20050101
  4. PRADAXA [Suspect]
     Indication: ATRIAL FIBRILLATION
     Dosage: 300 MG
     Route: 048
     Dates: start: 20101201
  5. SIMVASTATIN [Concomitant]
     Indication: BLOOD CHOLESTEROL INCREASED
     Dosage: 20 MG
     Route: 048
  6. ASPIRIN [Concomitant]
     Indication: ISCHAEMIC HEART DISEASE PROPHYLAXIS
     Route: 048
  7. SYNTHROID [Concomitant]
     Indication: THYROID DISORDER
     Dosage: 25 MCG
     Route: 048
     Dates: start: 20101201
  8. ATELVIA [Concomitant]
     Indication: OSTEOPOROSIS
     Dosage: 35 MG
     Route: 048
     Dates: start: 20070101
  9. FOLIC ACID [Concomitant]
     Dosage: 10 MG
     Route: 048
     Dates: start: 20020101
  10. VITAMIN B-12 [Concomitant]
     Indication: PERNICIOUS ANAEMIA
     Route: 030
     Dates: start: 20070101

REACTIONS (5)
  - POST PROCEDURAL HAEMORRHAGE [None]
  - DYSPNOEA [None]
  - DYSPNOEA EXERTIONAL [None]
  - CONTUSION [None]
  - PALPITATIONS [None]
